FAERS Safety Report 6682982-0 (Version None)
Quarter: 2010Q2

REPORT INFORMATION
  Report Type: 
  Country: None (occurrence: None)
  Receive Date: 20100413
  Receipt Date: 20100329
  Transmission Date: 20101027
  Serious: Yes (Death, Other)
  Sender: FDA-Public Use
  Company Number: AUR-APL-2010-00616

PATIENT
  Age: 3 Month
  Sex: Male
  Weight: 3.2 kg

DRUGS (7)
  1. ZIDOVUDINE [Suspect]
     Indication: HIV INFECTION
     Dosage: TRANSPLACENT
     Route: 064
  2. NEVIRAPINE [Suspect]
     Indication: HIV INFECTION
     Dosage: TRANSPLACENT; 3 WEEKS (3 TRIMESTER)
     Route: 064
  3. COMBIVIR [Suspect]
     Indication: HIV INFECTION
     Dosage: TRANSPLACENT
     Route: 064
  4. KALETRA [Suspect]
     Indication: HIV INFECTION
     Dosage: TRANSPLACENT
     Route: 064
  5. LAMIVUDINE [Suspect]
     Indication: ANTIVIRAL PROPHYLAXIS
  6. SEPTRIN [Suspect]
  7. VIRAMUNE [Suspect]
     Dosage: TRANSPLACENTAL
     Route: 064

REACTIONS (2)
  - CAESAREAN SECTION [None]
  - MATERNAL DRUGS AFFECTING FOETUS [None]
